FAERS Safety Report 6819578-3 (Version None)
Quarter: 2010Q3

REPORT INFORMATION
  Report Type: 
  Country: None (occurrence: None)
  Receive Date: 20100701
  Receipt Date: 20090629
  Transmission Date: 20110219
  Serious: No
  Sender: FDA-Public Use
  Company Number: US-TEVA-200628USA

PATIENT
  Sex: Female

DRUGS (1)
  1. AZILECT [Suspect]
     Route: 048

REACTIONS (1)
  - CONFUSIONAL STATE [None]
